FAERS Safety Report 22347338 (Version 1)
Quarter: 2023Q2

REPORT INFORMATION
  Report Type: Spontaneous
  Country: US (occurrence: US)
  Receive Date: 20230521
  Receipt Date: 20230521
  Transmission Date: 20230722
  Serious: No
  Sender: FDA-Public Use
  Company Number: US-JNJFOC-20230511189

PATIENT
  Sex: Male
  Weight: 86.77 kg

DRUGS (4)
  1. IMODIUM [Suspect]
     Active Substance: LOPERAMIDE HYDROCHLORIDE
     Indication: Product used for unknown indication
     Route: 065
  2. LENVIMA [Concomitant]
     Active Substance: LENVATINIB
     Indication: Renal cancer
     Dosage: 2 PILLS
     Route: 048
     Dates: start: 20220602
  3. LENVIMA [Concomitant]
     Active Substance: LENVATINIB
     Indication: Hepatic enzyme increased
  4. CABOMETYX [Concomitant]
     Active Substance: CABOZANTINIB S-MALATE
     Indication: Product used for unknown indication
     Route: 065

REACTIONS (5)
  - Stomatitis [Unknown]
  - Asthenia [Unknown]
  - Fatigue [Unknown]
  - Diarrhoea [Unknown]
  - Abdominal distension [Unknown]
